FAERS Safety Report 4275784-6 (Version None)
Quarter: 2004Q1

REPORT INFORMATION
  Report Type: 
  Country: None (occurrence: None)
  Receive Date: 20040121
  Receipt Date: 20031104
  Transmission Date: 20041129
  Serious: Yes (Other)
  Sender: FDA-Public Use
  Company Number: WAES 0311USA00323

PATIENT
  Age: 55 Year
  Sex: Female

DRUGS (5)
  1. [THERAPY UNSPECIFIED] [Concomitant]
  2. ALLERGENIC EXTRACT [Concomitant]
     Route: 051
  3. ZITHROMAX [Suspect]
     Indication: INFECTION
     Dates: end: 20031001
  4. ZETIA [Suspect]
     Indication: BLOOD CHOLESTEROL INCREASED
     Route: 048
     Dates: start: 20030101, end: 20031001
  5. ZETIA [Suspect]
     Route: 048
     Dates: start: 20030101

REACTIONS (2)
  - INFECTION [None]
  - STEVENS-JOHNSON SYNDROME [None]
